FAERS Safety Report 20391468 (Version 3)
Quarter: 2022Q2

REPORT INFORMATION
  Report Type: Report from Study
  Country: US (occurrence: US)
  Receive Date: 20220128
  Receipt Date: 20220401
  Transmission Date: 20220721
  Serious: No
  Sender: FDA-Public Use
  Company Number: US-NOVARTISTESTPH-NVSC2022US017788

PATIENT
  Sex: Female

DRUGS (2)
  1. ENTRESTO [Suspect]
     Active Substance: SACUBITRIL\VALSARTAN
     Indication: Product used for unknown indication
     Dosage: 1 DOSAGE FORM, BID
     Route: 065
  2. ENTRESTO [Suspect]
     Active Substance: SACUBITRIL\VALSARTAN
     Indication: Cardiac failure chronic
     Route: 065

REACTIONS (8)
  - Pain [Not Recovered/Not Resolved]
  - Swelling [Unknown]
  - Somnolence [Unknown]
  - Weight decreased [Unknown]
  - Arthritis [Unknown]
  - Back pain [Unknown]
  - Neck pain [Unknown]
  - Arthralgia [Unknown]
